FAERS Safety Report 7148493-3 (Version None)
Quarter: 2010Q4

REPORT INFORMATION
  Report Type: 
  Country: None (occurrence: None)
  Receive Date: 20101209
  Receipt Date: 20101129
  Transmission Date: 20110411
  Serious: Yes (Other)
  Sender: FDA-Public Use
  Company Number: RO-ELI_LILLY_AND_COMPANY-RO201012001211

PATIENT
  Sex: Male

DRUGS (1)
  1. ALIMTA [Suspect]
     Indication: ADENOCARCINOMA
     Dosage: 500 MG, UNK
     Route: 065
     Dates: start: 20101108

REACTIONS (2)
  - CONVULSION [None]
  - HYPERTENSION [None]
